FAERS Safety Report 12782257 (Version 1)
Quarter: 2016Q3

REPORT INFORMATION
  Report Type: Spontaneous
  Country: US (occurrence: US)
  Receive Date: 20160927
  Receipt Date: 20160927
  Transmission Date: 20161109
  Serious: Yes (Other)
  Sender: FDA-Public Use
  Company Number: US-BEH-200712346

PATIENT
  Age: 62 Year
  Sex: Female
  Weight: 204.12 kg

DRUGS (2)
  1. ALBURX [Suspect]
     Active Substance: ALBUMIN HUMAN
     Dosage: DAILY DOSE QUANTITY: 500, DAILY DOSE UNIT: ML
     Route: 042
     Dates: start: 20071023, end: 20071023
  2. ALBURX [Suspect]
     Active Substance: ALBUMIN HUMAN
     Dosage: DAILY DOSE QUANTITY: 500, DAILY DOSE UNIT: ML
     Route: 042
     Dates: start: 20071024, end: 20071024

REACTIONS (4)
  - Infusion site extravasation [Unknown]
  - Peripheral swelling [Unknown]
  - Pain in extremity [Unknown]
  - Cellulitis [Unknown]

NARRATIVE: CASE EVENT DATE: 20071024
